FAERS Safety Report 23854655 (Version 1)
Quarter: 2024Q2

REPORT INFORMATION
  Report Type: Spontaneous
  Country: US (occurrence: None)
  Receive Date: 20240514
  Receipt Date: 20240514
  Transmission Date: 20240715
  Serious: No
  Sender: FDA-Public Use
  Company Number: None

PATIENT
  Age: 68 Year
  Sex: Male

DRUGS (1)
  1. TEBENTAFUSP-TEBN [Suspect]
     Active Substance: TEBENTAFUSP-TEBN
     Dosage: 68 UG ONCE INTRAVENOUS?
     Route: 042
     Dates: start: 20240508

REACTIONS (3)
  - Cytokine release syndrome [None]
  - Chills [None]
  - Nausea [None]

NARRATIVE: CASE EVENT DATE: 20240508
